FAERS Safety Report 5321330-5 (Version None)
Quarter: 2007Q2

REPORT INFORMATION
  Report Type: 
  Country: None (occurrence: None)
  Receive Date: 20070507
  Receipt Date: 20070507
  Transmission Date: 20071010
  Serious: Yes (Hospitalization)
  Sender: FDA-Public Use
  Company Number: None

PATIENT
  Age: 29 Year
  Sex: Female
  Weight: 78.2 kg

DRUGS (2)
  1. PIROXICAM [Suspect]
     Indication: PAIN
     Dosage: 20 MG PO DAILY WITH FOOD
     Route: 048
     Dates: start: 20061024, end: 20070210
  2. TRAMADOL HCL [Suspect]
     Indication: PAIN
     Dosage: 50 MG PO TID
     Route: 048
     Dates: start: 20061024

REACTIONS (4)
  - ALCOHOL USE [None]
  - GASTRIC DISORDER [None]
  - HAEMATEMESIS [None]
  - HAEMOGLOBIN DECREASED [None]
